FAERS Safety Report 17972344 (Version 1)
Quarter: 2020Q2

REPORT INFORMATION
  Report Type: Spontaneous
  Country: US (occurrence: US)
  Receive Date: 20200630
  Receipt Date: 20200630
  Transmission Date: 20200714
  Serious: Yes (Hospitalization)
  Sender: FDA-Public Use
  Company Number: None

PATIENT
  Age: 33 Year
  Sex: Female

DRUGS (19)
  1. DARAPRIM [Concomitant]
     Active Substance: PYRIMETHAMINE
  2. FERROUS GLUC [Concomitant]
  3. LEUCOVORIN CALCIUM. [Concomitant]
     Active Substance: LEUCOVORIN CALCIUM
  4. ACETAMINOPHEN. [Concomitant]
     Active Substance: ACETAMINOPHEN
  5. ANTACID M LIQUID MINT [Concomitant]
  6. TIVICAY [Suspect]
     Active Substance: DOLUTEGRAVIR SODIUM
     Indication: HIV TEST POSITIVE
     Route: 048
     Dates: start: 20200316
  7. VITAMIN C [Concomitant]
     Active Substance: ASCORBIC ACID
  8. OXYCODONE [Concomitant]
     Active Substance: OXYCODONE
  9. PYRIMETHAMIN [Concomitant]
  10. TIVICAY [Concomitant]
     Active Substance: DOLUTEGRAVIR SODIUM
  11. PYRIMETHAMINE 25MG [Suspect]
     Active Substance: PYRIMETHAMINE
     Indication: CEREBRAL TOXOPLASMOSIS
     Route: 048
     Dates: start: 20200410
  12. DESCOVY [Suspect]
     Active Substance: EMTRICITABINE\TENOFOVIR ALAFENAMIDE FUMARATE
     Indication: HIV TEST POSITIVE
     Route: 048
     Dates: start: 20200316
  13. BUTALBITAL/ACETAMINOPHEN/CAFF [Concomitant]
  14. DESCOVY [Concomitant]
     Active Substance: EMTRICITABINE\TENOFOVIR ALAFENAMIDE FUMARATE
  15. AMITRIPTYLINE [Concomitant]
     Active Substance: AMITRIPTYLINE
  16. GABAPENTIN. [Concomitant]
     Active Substance: GABAPENTIN
  17. ATOVAQUONE. [Concomitant]
     Active Substance: ATOVAQUONE
  18. ESTARYLLA [Concomitant]
     Active Substance: ETHINYL ESTRADIOL\NORGESTIMATE
  19. LIDOCAINE 5% [Concomitant]
     Active Substance: LIDOCAINE

REACTIONS (4)
  - Menstrual disorder [None]
  - Haematemesis [None]
  - Gastritis [None]
  - Chest pain [None]

NARRATIVE: CASE EVENT DATE: 20200608
